FAERS Safety Report 12442588 (Version 1)
Quarter: 2016Q2

REPORT INFORMATION
  Report Type: Spontaneous
  Country: US (occurrence: None)
  Receive Date: 20160606
  Receipt Date: 20160606
  Transmission Date: 20160815
  Serious: Yes (Disabling)
  Sender: FDA-Public Use
  Company Number: None

PATIENT
  Age: 61 Year
  Sex: Female
  Weight: 56.7 kg

DRUGS (1)
  1. LETROZOLE, 2.5 MG [Suspect]
     Active Substance: LETROZOLE
     Indication: BREAST CANCER
     Route: 048

REACTIONS (2)
  - Musculoskeletal stiffness [None]
  - Grip strength decreased [None]

NARRATIVE: CASE EVENT DATE: 20160101
